FAERS Safety Report 8678738 (Version 3)
Quarter: 2012Q4

REPORT INFORMATION
  Report Type: Report from Study
  Country: GB (occurrence: GB)
  Receive Date: 20120723
  Receipt Date: 20120920
  Transmission Date: 20130627
  Serious: Yes (Hospitalization)
  Sender: FDA-Public Use
  Company Number: GB-GLAXOSMITHKLINE-B0801574B

PATIENT
  Age: 76 Year
  Sex: Male
  Weight: 75 kg

DRUGS (9)
  1. OFATUMUMAB [Suspect]
     Indication: CHRONIC LYMPHOCYTIC LEUKAEMIA
     Dosage: 1000MG Per day
     Route: 042
     Dates: start: 20120322, end: 20120619
  2. CHLORAMBUCIL [Suspect]
     Indication: CHRONIC LYMPHOCYTIC LEUKAEMIA
     Dosage: 18MG Cyclic
     Route: 048
     Dates: start: 20120323, end: 20120625
  3. PARACETAMOL [Concomitant]
     Indication: PROPHYLAXIS
     Route: 048
     Dates: start: 20120322, end: 20120619
  4. CHLORPHENIRAMINE [Concomitant]
     Indication: PROPHYLAXIS
     Route: 042
     Dates: start: 20120322, end: 20120619
  5. PREDNISOLONE [Concomitant]
     Indication: PROPHYLAXIS
     Route: 048
     Dates: start: 20120322, end: 20120619
  6. ALLOPURINOL [Concomitant]
     Indication: PROPHYLAXIS
     Dosage: 300MG Per day
     Route: 048
     Dates: start: 20120321
  7. METOCLOPRAMIDE [Concomitant]
     Indication: NAUSEA
     Dosage: 10MG As required
     Route: 048
     Dates: start: 20120322
  8. ACICLOVIR [Concomitant]
     Indication: PROPHYLAXIS
     Dosage: 400MG Twice per day
     Route: 048
     Dates: start: 20120322
  9. G-CSF [Concomitant]
     Dosage: 300MCG Per day
     Route: 058
     Dates: start: 20120629

REACTIONS (1)
  - Neutropenic sepsis [Recovered/Resolved]
